FAERS Safety Report 16652237 (Version 3)
Quarter: 2021Q2

REPORT INFORMATION
  Report Type: Spontaneous
  Country: US (occurrence: US)
  Receive Date: 20190731
  Receipt Date: 20210608
  Transmission Date: 20210716
  Serious: Yes (Hospitalization, Other)
  Sender: FDA-Public Use
  Company Number: US-HIKMA PHARMACEUTICALS USA INC.-US-H14001-19-04368

PATIENT
  Age: 73 Year
  Sex: Male
  Weight: 69 kg

DRUGS (18)
  1. LEVOTHYROXIN [Concomitant]
     Active Substance: LEVOTHYROXINE
     Indication: PRODUCT USED FOR UNKNOWN INDICATION
     Route: 065
     Dates: start: 20170712
  2. LOPRESSOR [Concomitant]
     Active Substance: METOPROLOL TARTRATE
     Indication: PRODUCT USED FOR UNKNOWN INDICATION
     Route: 065
     Dates: start: 20181027
  3. OMNIPAQUE [Concomitant]
     Active Substance: IOHEXOL
     Indication: PRODUCT USED FOR UNKNOWN INDICATION
     Dosage: UNKNOWN
     Route: 065
     Dates: start: 20190212, end: 20190212
  4. BASILIXIMAB [Suspect]
     Active Substance: BASILIXIMAB
     Dosage: ONCE
     Route: 042
     Dates: start: 20181027, end: 20181027
  5. DAPSONE. [Concomitant]
     Active Substance: DAPSONE
     Indication: PRODUCT USED FOR UNKNOWN INDICATION
     Route: 065
     Dates: start: 20181108
  6. PREDNISONE. [Suspect]
     Active Substance: PREDNISONE
     Indication: RENAL TRANSPLANT
     Route: 048
     Dates: start: 20181118
  7. TACROLIMUS. [Suspect]
     Active Substance: TACROLIMUS
     Dosage: 2 MG AM, 2 MG PM
     Route: 048
     Dates: start: 20190226
  8. TACROLIMUS. [Suspect]
     Active Substance: TACROLIMUS
     Route: 048
     Dates: start: 20190226
  9. DELTASONE [Concomitant]
     Active Substance: PREDNISONE
     Indication: PRODUCT USED FOR UNKNOWN INDICATION
     Route: 065
     Dates: start: 20181108
  10. ASKP1240 [Suspect]
     Active Substance: BLESELUMAB
     Indication: RENAL TRANSPLANT
     Route: 042
     Dates: start: 20181024
  11. TACROLIMUS. [Suspect]
     Active Substance: TACROLIMUS
     Indication: RENAL TRANSPLANT
     Dosage: 2 MG AM, 3 MG PM
     Route: 048
     Dates: start: 20181025
  12. METOPROLOL. [Concomitant]
     Active Substance: METOPROLOL
     Indication: PRODUCT USED FOR UNKNOWN INDICATION
     Dosage: UNKNOWN
     Route: 065
     Dates: start: 20190212
  13. BASILIXIMAB [Suspect]
     Active Substance: BASILIXIMAB
     Indication: RENAL TRANSPLANT
     Dosage: ONCE
     Route: 042
     Dates: start: 20181024, end: 20181024
  14. PREDNISONE. [Suspect]
     Active Substance: PREDNISONE
     Route: 048
  15. ASPIRIN. [Concomitant]
     Active Substance: ASPIRIN
     Indication: PRODUCT USED FOR UNKNOWN INDICATION
     Route: 065
  16. ZYLOPRIM [Concomitant]
     Active Substance: ALLOPURINOL
     Indication: PRODUCT USED FOR UNKNOWN INDICATION
     Route: 065
     Dates: start: 20181130
  17. ZOFRAN [Concomitant]
     Active Substance: ONDANSETRON HYDROCHLORIDE
     Indication: PRODUCT USED FOR UNKNOWN INDICATION
     Dosage: UNKNOWN
     Route: 065
     Dates: start: 20190212, end: 20190212
  18. LIPITOR [Concomitant]
     Active Substance: ATORVASTATIN CALCIUM
     Indication: PRODUCT USED FOR UNKNOWN INDICATION
     Route: 065
     Dates: start: 20190212, end: 20190319

REACTIONS (14)
  - Urinary tract infection staphylococcal [Recovered/Resolved]
  - Iron deficiency anaemia [Not Recovered/Not Resolved]
  - Chronic gastritis [Not Recovered/Not Resolved]
  - Acute kidney injury [Unknown]
  - Rectal haemorrhage [Not Recovered/Not Resolved]
  - Fatigue [Unknown]
  - Hypovolaemia [Unknown]
  - Condition aggravated [Unknown]
  - Clostridium difficile infection [Unknown]
  - Crohn^s disease [Not Recovered/Not Resolved]
  - Haemangioma of liver [Unknown]
  - Methaemoglobinaemia [Unknown]
  - Hypophagia [Unknown]
  - Gastrooesophageal reflux disease [Not Recovered/Not Resolved]

NARRATIVE: CASE EVENT DATE: 20190210
